FAERS Safety Report 7012805-1 (Version None)
Quarter: 2010Q3

REPORT INFORMATION
  Report Type: 
  Country: None (occurrence: None)
  Receive Date: 20100924
  Receipt Date: 20100914
  Transmission Date: 20110219
  Serious: Yes (Hospitalization, Disabling, Other)
  Sender: FDA-Public Use
  Company Number: B0661681A

PATIENT
  Sex: Male

DRUGS (43)
  1. ZOVIRAX [Suspect]
     Route: 031
     Dates: start: 20080714, end: 20080714
  2. ZOVIRAX [Suspect]
     Route: 031
     Dates: start: 20080718, end: 20080718
  3. ZOVIRAX [Suspect]
     Route: 031
     Dates: start: 20080905, end: 20080905
  4. ZOVIRAX [Suspect]
     Route: 031
     Dates: start: 20080922, end: 20080922
  5. ZOVIRAX [Suspect]
     Route: 031
     Dates: start: 20081126, end: 20081126
  6. ZOVIRAX [Suspect]
     Route: 031
     Dates: start: 20081210, end: 20081210
  7. ZOVIRAX [Suspect]
     Route: 031
     Dates: start: 20090105, end: 20090105
  8. ZOVIRAX [Suspect]
     Route: 031
     Dates: start: 20090204, end: 20090204
  9. ZOVIRAX [Suspect]
     Route: 031
     Dates: start: 20090401, end: 20090401
  10. ZOVIRAX [Suspect]
     Route: 031
     Dates: start: 20090424, end: 20090424
  11. ZOVIRAX [Suspect]
     Route: 031
     Dates: start: 20090501, end: 20090501
  12. ZOVIRAX [Suspect]
     Route: 031
     Dates: start: 20090529, end: 20090529
  13. ZOVIRAX [Suspect]
     Route: 031
     Dates: start: 20090612, end: 20090612
  14. ZOVIRAX [Suspect]
     Route: 031
     Dates: start: 20090828, end: 20090828
  15. ZOVIRAX [Suspect]
     Route: 031
     Dates: start: 20100219, end: 20100219
  16. ZOVIRAX [Suspect]
     Route: 031
     Dates: start: 20100222, end: 20100222
  17. ZOVIRAX [Suspect]
     Route: 031
     Dates: start: 20100226, end: 20100226
  18. ZOVIRAX [Suspect]
     Route: 031
     Dates: start: 20100305, end: 20100305
  19. ZOVIRAX [Suspect]
     Route: 031
     Dates: start: 20100318, end: 20100402
  20. ZOVIRAX [Concomitant]
     Dosage: 1000MG PER DAY
     Route: 048
     Dates: start: 20080718, end: 20080722
  21. CARTEOLOL HYDROCHLORIDE [Concomitant]
     Route: 065
  22. XALATAN [Concomitant]
     Route: 031
  23. ISOSORBIDE DINITRATE [Concomitant]
     Dosage: 2IUAX PER DAY
     Route: 048
  24. DOXAZOSIN MESYLATE [Concomitant]
     Dosage: 2MG PER DAY
     Route: 048
  25. CRESTOR [Concomitant]
     Indication: HYPERTENSION
     Dosage: 1IUAX PER DAY
     Route: 048
  26. ZOVIRAX [Concomitant]
     Dosage: 1000MG PER DAY
     Route: 048
     Dates: start: 20090225, end: 20090301
  27. ZOVIRAX [Concomitant]
     Dosage: 1000MG PER DAY
     Route: 048
     Dates: start: 20090422, end: 20090501
  28. ZOVIRAX [Concomitant]
     Dosage: 1000MG PER DAY
     Route: 048
     Dates: start: 20100219, end: 20100223
  29. CONIEL [Concomitant]
     Indication: HYPERTENSION
     Dosage: 4MG PER DAY
     Route: 048
     Dates: start: 20031121, end: 20050429
  30. NITOROL [Concomitant]
     Dosage: 2IUAX PER DAY
     Route: 048
     Dates: start: 20040312, end: 20091025
  31. MEVARICH [Concomitant]
     Dosage: 10MG PER DAY
     Route: 048
     Dates: start: 20041208, end: 20100422
  32. AZELASTINE HCL [Concomitant]
     Indication: HYPERTENSION
     Dosage: 16MG PER DAY
     Route: 048
     Dates: start: 20050430, end: 20050512
  33. TIMOLOL [Concomitant]
     Indication: OCULAR HYPERTENSION
     Route: 031
     Dates: start: 20051001, end: 20060101
  34. FLUMETHOLON [Concomitant]
     Indication: OCULAR HYPERTENSION
     Route: 031
     Dates: start: 20051001, end: 20051101
  35. DOXAZOSIN MESYLATE [Concomitant]
     Indication: HYPERTENSION
     Dosage: 2MG PER DAY
     Route: 048
     Dates: start: 20060417
  36. RINDERON A [Concomitant]
     Indication: OCULAR HYPERTENSION
     Route: 031
     Dates: start: 20070801
  37. AZOPT [Concomitant]
     Indication: OCULAR HYPERTENSION
     Route: 031
     Dates: start: 20071001
  38. OFLOXACIN [Concomitant]
     Route: 031
     Dates: start: 20071101, end: 20071101
  39. BENIDIPINE [Concomitant]
     Indication: HYPERTENSION
     Dosage: 4MG PER DAY
     Route: 048
     Dates: start: 20091026
  40. DIAMOX SRC [Concomitant]
     Indication: OCULAR HYPERTENSION
     Dosage: 250MG PER DAY
     Route: 048
     Dates: start: 20100305, end: 20100402
  41. SODIUM CHLORIDE [Concomitant]
     Route: 031
  42. UNKNOWN [Concomitant]
  43. HYALEIN [Concomitant]
     Route: 031
     Dates: start: 20100617

REACTIONS (5)
  - CATARACT [None]
  - CORNEAL DISORDER [None]
  - EYE HAEMORRHAGE [None]
  - VISION BLURRED [None]
  - VISUAL ACUITY REDUCED [None]
